APPROVED DRUG PRODUCT: DOPTELET
Active Ingredient: AVATROMBOPAG MALEATE
Strength: EQ 20MG BASE
Dosage Form/Route: TABLET;ORAL
Application: N210238 | Product #001
Applicant: AKARX INC
Approved: May 21, 2018 | RLD: Yes | RS: Yes | Type: RX

PATENTS:
Patent 7638536 | Expires: Jul 28, 2027

EXCLUSIVITY:
Code: I-974 | Date: Jul 24, 2028
Code: ODE-246 | Date: Jun 26, 2026